FAERS Safety Report 8840276 (Version 1)
Quarter: 2012Q4

REPORT INFORMATION
  Report Type: 
  Country: US (occurrence: US)
  Receive Date: 20121015
  Receipt Date: 20121015
  Transmission Date: 20130627
  Serious: No
  Sender: FDA-Public Use
  Company Number: US-BAYER-2012-104757

PATIENT
  Age: 67 Year
  Sex: Male
  Weight: 89.8 kg

DRUGS (8)
  1. ALEVE CAPLET/TABLET,MIDOL EXTENDED RELIEF CAPLET [Suspect]
     Indication: PAIN
     Dosage: 1 DF, daily
     Route: 048
     Dates: start: 20120901
  2. GLUCOPHAGE XR [Concomitant]
  3. SEROQUEL [Concomitant]
  4. KLONOPIN [Concomitant]
  5. AMLODIPINE [Concomitant]
  6. VITAMIN D3 [Concomitant]
  7. AMARYL [Concomitant]
  8. LYRICA [Concomitant]

REACTIONS (1)
  - Muscle spasms [Not Recovered/Not Resolved]
